FAERS Safety Report 4434915-5 (Version None)
Quarter: 2004Q3

REPORT INFORMATION
  Report Type: 
  Country: None (occurrence: None)
  Receive Date: 20040827
  Receipt Date: 20040812
  Transmission Date: 20050211
  Serious: Yes (Life-Threatening)
  Sender: FDA-Public Use
  Company Number: PHEH2004US08815

PATIENT
  Age: 15 Year
  Sex: Female

DRUGS (1)
  1. TRILEPTAL [Suspect]
     Indication: CONVULSION
     Dosage: 150 MG, BID
     Route: 048
     Dates: start: 20040421, end: 20040507

REACTIONS (3)
  - CRYING [None]
  - DEPRESSION SUICIDAL [None]
  - SUICIDAL IDEATION [None]
